FAERS Safety Report 5315313-9 (Version None)
Quarter: 2007Q2

REPORT INFORMATION
  Report Type: 
  Country: None (occurrence: None)
  Receive Date: 20070502
  Receipt Date: 20070420
  Transmission Date: 20071010
  Serious: Yes (Other)
  Sender: FDA-Public Use
  Company Number: PFIZER INC-2007033004

PATIENT
  Sex: Male
  Weight: 104.54 kg

DRUGS (4)
  1. CHANTIX [Suspect]
     Indication: SMOKING CESSATION THERAPY
  2. STATINS [Concomitant]
  3. ANTIHYPERTENSIVES [Concomitant]
  4. VITAMINS [Concomitant]

REACTIONS (2)
  - PERSONALITY CHANGE [None]
  - ROTATOR CUFF REPAIR [None]
